FAERS Safety Report 25421493 (Version 1)
Quarter: 2025Q2

REPORT INFORMATION
  Report Type: Spontaneous
  Country: HU (occurrence: HU)
  Receive Date: 20250611
  Receipt Date: 20250611
  Transmission Date: 20250716
  Serious: Yes (Life-Threatening, Hospitalization)
  Sender: ROCHE
  Company Number: HU-ROCHE-10000306257

PATIENT

DRUGS (3)
  1. RITUXAN [Suspect]
     Active Substance: RITUXIMAB
     Indication: Product used for unknown indication
     Route: 065
  2. ACTEMRA [Suspect]
     Active Substance: TOCILIZUMAB
     Indication: Product used for unknown indication
     Route: 065
  3. ENBREL [Suspect]
     Active Substance: ETANERCEPT
     Indication: Product used for unknown indication
     Route: 065

REACTIONS (4)
  - Anaphylactic reaction [Unknown]
  - Colonic abscess [Unknown]
  - Large intestine perforation [Unknown]
  - Sepsis [Unknown]
